FAERS Safety Report 5223096-6 (Version None)
Quarter: 2007Q1

REPORT INFORMATION
  Report Type: 
  Country: None (occurrence: None)
  Receive Date: 20070129
  Receipt Date: 20070119
  Transmission Date: 20070707
  Serious: Yes (Hospitalization)
  Sender: FDA-Public Use
  Company Number: CH-PFIZER INC-2007005251

PATIENT
  Sex: Female
  Weight: 72 kg

DRUGS (10)
  1. XANAX [Suspect]
     Route: 048
  2. GLEEVEC [Suspect]
     Indication: CHRONIC MYELOID LEUKAEMIA
     Route: 048
     Dates: start: 20061001, end: 20061116
  3. ZOLPIDEM TARTRATE [Suspect]
     Dosage: FREQ:DAILY
     Route: 048
  4. ASPIRIN [Concomitant]
     Dosage: DAILY DOSE:100MG
     Route: 048
  5. DIAMICRON [Concomitant]
     Dosage: DAILY DOSE:160MG
  6. ALLOPURINOL SODIUM [Concomitant]
     Dosage: DAILY DOSE:300MG
  7. METFORMIN HCL [Concomitant]
     Dosage: DAILY DOSE:1000MG
  8. AVANDIA [Concomitant]
     Dosage: DAILY DOSE:4MG
  9. ENATEC [Concomitant]
     Route: 048
  10. RESONIUM [Concomitant]

REACTIONS (2)
  - ACUTE GENERALISED EXANTHEMATOUS PUSTULOSIS [None]
  - SYSTEMIC INFLAMMATORY RESPONSE SYNDROME [None]
